FAERS Safety Report 16803789 (Version 1)
Quarter: 2019Q3

REPORT INFORMATION
  Report Type: Other
  Country: SE (occurrence: SE)
  Receive Date: 20190913
  Receipt Date: 20190913
  Transmission Date: 20191005
  Serious: Yes (Death, Other)
  Sender: FDA-Public Use
  Company Number: SE-ASTELLAS-2019US035847

PATIENT
  Age: 71 Year
  Sex: Male

DRUGS (2)
  1. XTANDI [Suspect]
     Active Substance: ENZALUTAMIDE
     Indication: HORMONE-REFRACTORY PROSTATE CANCER
  2. XTANDI [Suspect]
     Active Substance: ENZALUTAMIDE
     Indication: METASTASES TO BONE
     Route: 048
     Dates: start: 201907

REACTIONS (6)
  - Atrial fibrillation [Fatal]
  - Diarrhoea [Fatal]
  - Pulmonary embolism [Fatal]
  - Tachycardia [Fatal]
  - Sepsis [Fatal]
  - Presyncope [Fatal]

NARRATIVE: CASE EVENT DATE: 201907
